FAERS Safety Report 4499143-6 (Version None)
Quarter: 2004Q4

REPORT INFORMATION
  Report Type: 
  Country: None (occurrence: None)
  Receive Date: 20041111
  Receipt Date: 20041103
  Transmission Date: 20050328
  Serious: Yes (Other)
  Sender: FDA-Public Use
  Company Number: US-MERCK-0411USA01357

PATIENT
  Age: 51 Year
  Sex: Male

DRUGS (2)
  1. VIOXX [Suspect]
     Indication: ARTHRITIS
     Route: 048
     Dates: start: 20000901, end: 20040930
  2. FLONASE [Concomitant]
     Route: 065

REACTIONS (1)
  - TRANSIENT ISCHAEMIC ATTACK [None]
